FAERS Safety Report 7203892-6 (Version None)
Quarter: 2010Q4

REPORT INFORMATION
  Report Type: 
  Country: None (occurrence: None)
  Receive Date: 20101230
  Receipt Date: 20101223
  Transmission Date: 20110411
  Serious: Yes (Other)
  Sender: FDA-Public Use
  Company Number: GB-JNJFOC-20101207772

PATIENT
  Age: 36 Year
  Sex: Female

DRUGS (2)
  1. RISPERIDONE [Suspect]
     Indication: ILL-DEFINED DISORDER
     Route: 048
  2. ZAPONEX [Interacting]
     Indication: ILL-DEFINED DISORDER
     Route: 048

REACTIONS (6)
  - DECREASED APPETITE [None]
  - DIZZINESS [None]
  - DRUG INTERACTION [None]
  - FALL [None]
  - HYPOTENSION [None]
  - ORTHOSTATIC HYPOTENSION [None]
